FAERS Safety Report 20790877 (Version 2)
Quarter: 2022Q2

REPORT INFORMATION
  Report Type: Spontaneous
  Country: MX (occurrence: None)
  Receive Date: 20220505
  Receipt Date: 20220509
  Transmission Date: 20220721
  Serious: Yes (Other)
  Sender: FDA-Public Use
  Company Number: 2022A166086

PATIENT
  Age: 38 Year
  Sex: Female

DRUGS (1)
  1. FASENRA [Suspect]
     Active Substance: BENRALIZUMAB
     Indication: Asthma
     Dosage: 30 MG, FIRST 3 DOSES WERE APPLIED EVERY 4 WEEKS AND SUBSEQUENTLY EVERY 8 WEEKS,
     Route: 058

REACTIONS (3)
  - Exposure during pregnancy [Unknown]
  - Application site inflammation [Unknown]
  - Application site pain [Unknown]
